FAERS Safety Report 9789029 (Version 1)
Quarter: 2013Q4

REPORT INFORMATION
  Report Type: Spontaneous
  Country: US (occurrence: US)
  Receive Date: 20131230
  Receipt Date: 20131230
  Transmission Date: 20140711
  Serious: No
  Sender: FDA-Public Use
  Company Number: US-ASTRAZENECA-2013SE83896

PATIENT
  Age: 83 Year
  Sex: Female

DRUGS (9)
  1. METOPROLOL SUCCINATE ER [Suspect]
     Route: 048
  2. BRILINTA [Suspect]
     Indication: STENT PLACEMENT
     Route: 048
  3. NITROSTAT [Concomitant]
     Dosage: 0.4MG NR
  4. ACETAMINOPHEN [Concomitant]
     Indication: PAIN
  5. MILK OF MAGNESIA [Concomitant]
  6. ASPIRIN [Concomitant]
  7. ATORVASTATIN [Concomitant]
  8. CENTRUM ORANGE [Concomitant]
     Dosage: NR DAILY
  9. CALCIUM/VIT D [Concomitant]
     Dosage: 315/250 DAILY

REACTIONS (1)
  - Delirium [Unknown]
